FAERS Safety Report 5587025-8 (Version None)
Quarter: 2008Q1

REPORT INFORMATION
  Report Type: 
  Country: None (occurrence: None)
  Receive Date: 20080110
  Receipt Date: 20080103
  Transmission Date: 20080703
  Serious: Yes (Hospitalization)
  Sender: FDA-Public Use
  Company Number: B0359626A

PATIENT
  Age: 34 Year
  Sex: Male

DRUGS (2)
  1. SEROXAT [Suspect]
     Route: 065
     Dates: start: 20000110
  2. PARACETAMOL [Suspect]
     Route: 065

REACTIONS (9)
  - AGGRESSION [None]
  - ALCOHOL POISONING [None]
  - DIZZINESS [None]
  - DRUG WITHDRAWAL SYNDROME [None]
  - NAUSEA [None]
  - OVERDOSE [None]
  - PARAESTHESIA [None]
  - SUICIDAL IDEATION [None]
  - SUICIDE ATTEMPT [None]
